FAERS Safety Report 9690160 (Version 1)
Quarter: 2013Q4

REPORT INFORMATION
  Report Type: Spontaneous
  Country: IT (occurrence: IT)
  Receive Date: 20131115
  Receipt Date: 20131115
  Transmission Date: 20140711
  Serious: Yes (Hospitalization)
  Sender: FDA-Public Use
  Company Number: PHHY2013IT129686

PATIENT
  Age: 13 Year
  Sex: Female

DRUGS (1)
  1. SANDIMMUN [Suspect]
     Indication: ACCIDENTAL OVERDOSE
     Dosage: 400 MG, BID
     Route: 048
     Dates: start: 20130702, end: 20130704

REACTIONS (2)
  - Burning sensation [Recovering/Resolving]
  - Paraesthesia [Recovering/Resolving]
